FAERS Safety Report 20947492 (Version 1)
Quarter: 2022Q2

REPORT INFORMATION
  Report Type: Spontaneous
  Country: US (occurrence: US)
  Receive Date: 20220610
  Receipt Date: 20220610
  Transmission Date: 20220721
  Serious: No
  Sender: FDA-Public Use
  Company Number: US-RIGEL PHARMACEUTICALS, INC.-2021FOS000835

PATIENT
  Sex: Female
  Weight: 74.789 kg

DRUGS (2)
  1. TAVALISSE [Suspect]
     Active Substance: FOSTAMATINIB
     Indication: Hereditary haemolytic anaemia
     Dosage: 150 MG, QD
     Route: 048
     Dates: start: 2021
  2. TAVALISSE [Suspect]
     Active Substance: FOSTAMATINIB
     Dosage: UNK
     Route: 048
     Dates: start: 2021, end: 2021

REACTIONS (8)
  - Blood potassium increased [Unknown]
  - Abscess oral [Unknown]
  - Oropharyngeal pain [Unknown]
  - Stomatitis [Unknown]
  - Blood iron increased [Unknown]
  - Off label use [Unknown]
  - Diarrhoea [Unknown]
  - Hypertension [Recovered/Resolved]

NARRATIVE: CASE EVENT DATE: 20210101
